FAERS Safety Report 4524896-8 (Version None)
Quarter: 2004Q4

REPORT INFORMATION
  Report Type: 
  Country: None (occurrence: None)
  Receive Date: 20041210
  Receipt Date: 20041101
  Transmission Date: 20050328
  Serious: Yes (Other)
  Sender: FDA-Public Use
  Company Number: M2004-1814

PATIENT
  Age: 72 Year
  Sex: Female

DRUGS (7)
  1. METOCLOPRAMIDE [Suspect]
     Indication: NAUSEA
     Dosage: 10 MG ON ALL OCCASIONS
  2. SERTRALINE HCL [Suspect]
     Indication: AGORAPHOBIA
     Dosage: 100 MG
  3. SERTRALINE HCL [Suspect]
     Indication: DEPRESSION
     Dosage: 100 MG
  4. CELECOXIB [Concomitant]
  5. HYDROCORTISONE [Concomitant]
  6. ACETAMINOPHEN [Concomitant]
  7. MORPHINE SULFATE [Concomitant]

REACTIONS (1)
  - SEROTONIN SYNDROME [None]
